FAERS Safety Report 12084026 (Version 1)
Quarter: 2016Q1

REPORT INFORMATION
  Report Type: Spontaneous
  Country: US (occurrence: None)
  Receive Date: 20160216
  Receipt Date: 20160216
  Transmission Date: 20160526
  Serious: Yes (Life-Threatening, Hospitalization, Disabling, Other)
  Sender: FDA-Public Use
  Company Number: None

PATIENT
  Age: 37 Year
  Sex: Female
  Weight: 74.84 kg

DRUGS (1)
  1. EFFEXOR [Suspect]
     Active Substance: VENLAFAXINE HYDROCHLORIDE
     Indication: DEPRESSION
     Dosage: DATES OF USE - ABOUT 5 YEARS
     Route: 048

REACTIONS (10)
  - Tremor [None]
  - Drug withdrawal syndrome [None]
  - Panic attack [None]
  - Hyperhidrosis [None]
  - Agitation [None]
  - Paraesthesia [None]
  - Crying [None]
  - Drug effect decreased [None]
  - Suicidal ideation [None]
  - Hallucination [None]

NARRATIVE: CASE EVENT DATE: 20110601
